FAERS Safety Report 5579056-9 (Version None)
Quarter: 2007Q4

REPORT INFORMATION
  Report Type: 
  Country: None (occurrence: None)
  Receive Date: 20071228
  Receipt Date: 20071228
  Transmission Date: 20080405
  Serious: Yes (Life-Threatening, Hospitalization, Other)
  Sender: FDA-Public Use
  Company Number: None

PATIENT
  Age: 36 Year
  Sex: Male
  Weight: 73.9363 kg

DRUGS (1)
  1. PARADIGM 512 INSULIN PUMP SERIAL # PAR3837H [Suspect]
     Indication: TYPE 1 DIABETES MELLITUS
     Dates: start: 20070709, end: 20071227

REACTIONS (5)
  - ABDOMINAL PAIN UPPER [None]
  - BLOOD GLUCOSE INCREASED [None]
  - CHEST PAIN [None]
  - DEVICE FAILURE [None]
  - VOMITING [None]
